FAERS Safety Report 5370186-3 (Version None)
Quarter: 2007Q2

REPORT INFORMATION
  Report Type: 
  Country: None (occurrence: None)
  Receive Date: 20070613
  Receipt Date: 20070418
  Transmission Date: 20071010
  Serious: No
  Sender: FDA-Public Use
  Company Number: IND-AE-07-SAN-021

PATIENT

DRUGS (1)
  1. SANCTURA [Suspect]
     Dosage: 20MG - BID - ORAL
     Route: 048

REACTIONS (3)
  - DRY MOUTH [None]
  - PRODUCTIVE COUGH [None]
  - THROAT IRRITATION [None]
